FAERS Safety Report 10587754 (Version 4)
Quarter: 2015Q1

REPORT INFORMATION
  Report Type: Spontaneous
  Country: JP (occurrence: JP)
  Receive Date: 20141117
  Receipt Date: 20150311
  Transmission Date: 20150720
  Serious: Yes (Hospitalization, Disabling, Other)
  Sender: FDA-Public Use
  Company Number: JP-TEVA-515965ISR

PATIENT
  Age: 41 Year
  Sex: Male
  Weight: 77 kg

DRUGS (7)
  1. (TS)FUROSEMIDE TABLET ^TAIYO^, TAB [Suspect]
     Active Substance: FUROSEMIDE
     Route: 048
     Dates: start: 20141026
  2. TANATRIL TABLETS [Concomitant]
     Indication: CARDIAC FAILURE
     Dosage: 7.5 MILLIGRAM DAILY;
     Route: 048
  3. DIART TAB. [Concomitant]
     Indication: CARDIAC FAILURE
     Dosage: 60 MILLIGRAM DAILY;
     Route: 048
  4. ARTIST TABLETS [Concomitant]
     Active Substance: CARVEDILOL
     Indication: CARDIAC FAILURE
     Dosage: 7.5 MILLIGRAM DAILY;
     Route: 048
  5. PIMOBENDAN TAB. [Concomitant]
     Indication: CARDIAC FAILURE
     Dosage: 2.5 MILLIGRAM DAILY;
     Route: 048
  6. ALDACTONE [Concomitant]
     Active Substance: SPIRONOLACTONE
     Indication: CARDIAC FAILURE
     Dosage: 50 MILLIGRAM DAILY;
     Route: 048
  7. (TS)FUROSEMIDE TABLET ^TAIYO^, TAB [Suspect]
     Active Substance: FUROSEMIDE
     Indication: CARDIAC FAILURE
     Dosage: PRESCRIBED FOR 10 TIMES AS NEEDED (ACTUAL INTAKE WAS A FEW TIMES)
     Route: 048
     Dates: start: 20140723, end: 20141011

REACTIONS (3)
  - Product substitution issue [Unknown]
  - Hearing impaired [Unknown]
  - Cardiac failure [Unknown]

NARRATIVE: CASE EVENT DATE: 201410
